FAERS Safety Report 9026092 (Version 1)
Quarter: 2012Q4

REPORT INFORMATION
  Report Type: Spontaneous
  Country: US (occurrence: None)
  Receive Date: 20121214
  Receipt Date: 20121214
  Transmission Date: 20130627
  Serious: Yes (Hospitalization)
  Sender: FDA-Public Use
  Company Number: None

PATIENT
  Age: 33 Year
  Sex: Male
  Weight: 88 kg

DRUGS (2)
  1. STRIBILD [Suspect]
     Indication: HIV INFECTION
     Route: 048
     Dates: start: 20121025, end: 20121127
  2. MOTRIN [Concomitant]

REACTIONS (3)
  - Blood creatinine increased [None]
  - Nephrolithiasis [None]
  - Calculus ureteric [None]
